FAERS Safety Report 5868910-6 (Version None)
Quarter: 2008Q3

REPORT INFORMATION
  Report Type: 
  Country: None (occurrence: None)
  Receive Date: 20080902
  Receipt Date: 20080902
  Transmission Date: 20090109
  Serious: Yes (Other)
  Sender: FDA-Public Use
  Company Number: None

PATIENT
  Age: 36 Year
  Sex: Female
  Weight: 68.9467 kg

DRUGS (1)
  1. AMOXICILLIN AND CLAVULANATE POTASSIUM [Suspect]
     Indication: SINUSITIS
     Dosage: ONE TABLET TWICE A DAY PO
     Route: 048
     Dates: start: 20080830, end: 20080830

REACTIONS (4)
  - NO REACTION ON PREVIOUS EXPOSURE TO DRUG [None]
  - PALPITATIONS [None]
  - SWOLLEN TONGUE [None]
  - THROAT TIGHTNESS [None]
